FAERS Safety Report 20354157 (Version 2)
Quarter: 2022Q1

REPORT INFORMATION
  Report Type: Spontaneous
  Country: JP (occurrence: JP)
  Receive Date: 20220120
  Receipt Date: 20220310
  Transmission Date: 20220423
  Serious: Yes (Other)
  Sender: FDA-Public Use
  Company Number: JP-MSD-2201JPN001135J

PATIENT
  Age: 7 Decade
  Sex: Male

DRUGS (3)
  1. KEYTRUDA [Suspect]
     Active Substance: PEMBROLIZUMAB
     Indication: Oropharyngeal cancer
     Dosage: 200 MILLIGRAM, Q3W
     Route: 041
  2. CISPLATIN [Suspect]
     Active Substance: CISPLATIN
     Indication: Oropharyngeal cancer
     Dosage: UNK
     Route: 051
  3. FLUOROURACIL [Suspect]
     Active Substance: FLUOROURACIL
     Indication: Oropharyngeal cancer
     Dosage: UNK
     Route: 051

REACTIONS (3)
  - Renal impairment [Recovering/Resolving]
  - Hepatic function abnormal [Recovering/Resolving]
  - Anaemia [Recovering/Resolving]
